FAERS Safety Report 5273818-3 (Version None)
Quarter: 2007Q1

REPORT INFORMATION
  Report Type: 
  Country: None (occurrence: None)
  Receive Date: 20070323
  Receipt Date: 20070309
  Transmission Date: 20070707
  Serious: Yes (Hospitalization)
  Sender: FDA-Public Use
  Company Number: FR-BAYER-200711410GDS

PATIENT
  Age: 37 Year
  Sex: Female

DRUGS (3)
  1. DACARBAZINE [Suspect]
     Indication: MALIGNANT MELANOMA
     Route: 042
     Dates: start: 20070206, end: 20070206
  2. IPILIMUMAB OR PLACEBO [Suspect]
     Indication: MALIGNANT MELANOMA
     Route: 042
     Dates: start: 20070117, end: 20070206
  3. LEVOEA [Concomitant]
     Indication: DRUG USE FOR UNKNOWN INDICATION

REACTIONS (3)
  - HEADACHE [None]
  - HYPERTENSION [None]
  - PYREXIA [None]
